FAERS Safety Report 7689768-9 (Version None)
Quarter: 2011Q3

REPORT INFORMATION
  Report Type: 
  Country: None (occurrence: None)
  Receive Date: 20110817
  Receipt Date: 20110808
  Transmission Date: 20111222
  Serious: No
  Sender: FDA-Public Use
  Company Number: US-US-EMD SERONO, INC.-7067931

PATIENT
  Sex: Male

DRUGS (8)
  1. DIOVAN [Concomitant]
     Indication: BLOOD PRESSURE INCREASED
     Dosage: 160/12.5
     Route: 048
  2. REBIF [Suspect]
     Indication: MULTIPLE SCLEROSIS
     Route: 058
     Dates: start: 20091001, end: 20110620
  3. REBIF [Suspect]
     Route: 058
     Dates: start: 20110620, end: 20110729
  4. VITAMIN D [Concomitant]
     Route: 048
     Dates: end: 20110707
  5. VITAMIN D [Concomitant]
     Route: 048
  6. LOTREL [Concomitant]
     Indication: BLOOD PRESSURE INCREASED
     Dosage: 5/20 MG
     Route: 048
  7. VYTORIN [Concomitant]
     Indication: BLOOD PRESSURE INCREASED
     Dosage: 10/20
     Route: 048
  8. CARDIZEM [Concomitant]
     Indication: BLOOD PRESSURE INCREASED
     Route: 048

REACTIONS (4)
  - INJECTION SITE PRURITUS [None]
  - PLATELET COUNT DECREASED [None]
  - BLOOD TEST ABNORMAL [None]
  - INJECTION SITE PAIN [None]
